FAERS Safety Report 4733481-4 (Version None)
Quarter: 2005Q3

REPORT INFORMATION
  Report Type: 
  Country: None (occurrence: None)
  Receive Date: 20050725
  Receipt Date: 20041115
  Transmission Date: 20060218
  Serious: Yes (Other)
  Sender: FDA-Public Use
  Company Number: KII-2002-0004444

PATIENT
  Sex: Male

DRUGS (1)
  1. MS CONTIN [Suspect]
     Indication: PAIN

REACTIONS (5)
  - DIARRHOEA [None]
  - DRUG DEPENDENCE [None]
  - MYALGIA [None]
  - NAUSEA [None]
  - VOMITING [None]
